FAERS Safety Report 6535012-5 (Version None)
Quarter: 2010Q1

REPORT INFORMATION
  Report Type: 
  Country: None (occurrence: None)
  Receive Date: 20100111
  Receipt Date: 20100111
  Transmission Date: 20100710
  Serious: Yes (Other)
  Sender: FDA-Public Use
  Company Number: None

PATIENT
  Age: 59 Year
  Sex: Female
  Weight: 52.1637 kg

DRUGS (3)
  1. PROMETRIUM [Suspect]
     Indication: HOT FLUSH
     Dates: start: 20090815, end: 20091015
  2. PROMETRIUM [Suspect]
     Indication: MENOPAUSAL SYMPTOMS
     Dates: start: 20090815, end: 20091015
  3. VIVELLE-DOT [Concomitant]

REACTIONS (1)
  - DEPRESSION [None]
